FAERS Safety Report 12782756 (Version 1)
Quarter: 2016Q3

REPORT INFORMATION
  Report Type: Other
  Country: CO (occurrence: CO)
  Receive Date: 20160927
  Receipt Date: 20160927
  Transmission Date: 20161109
  Serious: Yes (Other)
  Sender: FDA-Public Use
  Company Number: CO-LUPIN PHARMACEUTICALS INC.-2016-04303

PATIENT
  Age: 36 Year
  Sex: Female

DRUGS (1)
  1. CEFTRIAXONE. [Suspect]
     Active Substance: CEFTRIAXONE
     Indication: RESPIRATORY TRACT INFECTION
     Route: 042

REACTIONS (1)
  - Stress cardiomyopathy [Recovered/Resolved]
